FAERS Safety Report 4709890-6 (Version None)
Quarter: 2005Q3

REPORT INFORMATION
  Report Type: 
  Country: None (occurrence: None)
  Receive Date: 20050708
  Receipt Date: 20050705
  Transmission Date: 20060218
  Serious: Yes (Hospitalization, Disabling)
  Sender: FDA-Public Use
  Company Number: JP-SANOFI-SYNTHELABO-F01200501180

PATIENT
  Sex: Male
  Weight: 80 kg

DRUGS (4)
  1. OXALIPLATIN [Suspect]
     Indication: RECTAL CANCER
     Dosage: 157.3MG/BODY=85MG/M2 INFUSION DAY 1
     Route: 041
     Dates: start: 20050425, end: 20050530
  2. FLUOROURACIL [Suspect]
     Dosage: 400 MG/M2 IV BOLUS AND 600 MG/M2 IV 22 HOURS CONTINUOUS INFUSION, Q2W
     Route: 040
     Dates: start: 20050425, end: 20050425
  3. FLUOROURACIL [Suspect]
     Dosage: 400 MG/M2 IV BOLUS AND 600 MG/M2 IV 22 HOURS CONTINUOUS INFUSION, Q2W
     Route: 041
     Dates: start: 20050425, end: 20050531
  4. CALCIUM LEVOFOLINATE [Suspect]
     Dosage: 185MG/BODY=100MG/M2 DAYS 1 AND 2
     Route: 042
     Dates: start: 20050425, end: 20050531

REACTIONS (2)
  - DEPRESSED LEVEL OF CONSCIOUSNESS [None]
  - HYPERAMMONAEMIA [None]
